FAERS Safety Report 22258844 (Version 1)
Quarter: 2023Q2

REPORT INFORMATION
  Report Type: Spontaneous
  Country: US (occurrence: US)
  Receive Date: 20230427
  Receipt Date: 20230427
  Transmission Date: 20230722
  Serious: Yes (Hospitalization)
  Sender: FDA-Public Use
  Company Number: US-drreddys-LIT/USA/23/0164188

PATIENT
  Age: 83 Year
  Sex: Female

DRUGS (2)
  1. DEXAMETHASONE [Suspect]
     Active Substance: DEXAMETHASONE
     Indication: COVID-19
  2. VEKLURY [Suspect]
     Active Substance: REMDESIVIR
     Indication: COVID-19
     Dosage: 200MG ON DAY 1 FOLLOWED BY 100 MG/DAY FOR 4 DAYS

REACTIONS (3)
  - Oral candidiasis [Unknown]
  - Herpes simplex reactivation [Unknown]
  - Product use in unapproved indication [Unknown]
